FAERS Safety Report 6720514-9 (Version None)
Quarter: 2010Q2

REPORT INFORMATION
  Report Type: 
  Country: None (occurrence: None)
  Receive Date: 20100511
  Receipt Date: 20100428
  Transmission Date: 20101027
  Serious: Yes (Other)
  Sender: FDA-Public Use
  Company Number: DK-AMGEN-QUU410067

PATIENT
  Sex: Female

DRUGS (1)
  1. ENBREL [Suspect]
     Indication: PSORIATIC ARTHROPATHY
     Route: 058
     Dates: start: 20091105

REACTIONS (4)
  - HEADACHE [None]
  - HYPOAESTHESIA [None]
  - HYPOAESTHESIA FACIAL [None]
  - PHOTOPHOBIA [None]
